FAERS Safety Report 7535753-7 (Version None)
Quarter: 2011Q2

REPORT INFORMATION
  Report Type: 
  Country: None (occurrence: None)
  Receive Date: 20110609
  Receipt Date: 20110405
  Transmission Date: 20111010
  Serious: No
  Sender: FDA-Public Use
  Company Number: US-KINGPHARMUSA00001-K201100409

PATIENT
  Age: 53 Year
  Sex: Male

DRUGS (8)
  1. EMBEDA [Suspect]
     Indication: BACK PAIN
     Dosage: 30 MG, BID
     Route: 048
     Dates: start: 20100101
  2. PRISTIQ [Concomitant]
     Indication: NERVOUSNESS
  3. OXYCODONE HCL [Concomitant]
     Indication: BREAKTHROUGH PAIN
  4. VITAMIN TAB [Concomitant]
  5. ASPIRIN [Concomitant]
  6. FINASTERIDE [Concomitant]
  7. NEXIUM [Concomitant]
  8. CARDIZEM [Concomitant]
     Indication: VENOUS INJURY

REACTIONS (1)
  - ACNE [None]
